FAERS Safety Report 15989203 (Version 1)
Quarter: 2019Q1

REPORT INFORMATION
  Report Type: Spontaneous
  Country: US (occurrence: US)
  Receive Date: 20190220
  Receipt Date: 20190220
  Transmission Date: 20190418
  Serious: Yes (Life-Threatening, Hospitalization)
  Sender: FDA-Public Use
  Company Number: None

PATIENT
  Age: 70 Year
  Sex: Male
  Weight: 99 kg

DRUGS (1)
  1. NETARSUDIL. [Suspect]
     Active Substance: NETARSUDIL
     Indication: GLAUCOMA
     Route: 047
     Dates: start: 20190219, end: 20190219

REACTIONS (3)
  - Chest pain [None]
  - Blood pressure increased [None]
  - Discomfort [None]

NARRATIVE: CASE EVENT DATE: 20190219
